FAERS Safety Report 10569920 (Version 1)
Quarter: 2014Q4

REPORT INFORMATION
  Report Type: Spontaneous
  Country: US (occurrence: None)
  Receive Date: 20141106
  Receipt Date: 20141106
  Transmission Date: 20150529
  Serious: No
  Sender: FDA-Public Use
  Company Number: None

PATIENT
  Age: 26 Year
  Sex: Female

DRUGS (1)
  1. CEFZIL [Suspect]
     Active Substance: CEFPROZIL
     Indication: OTITIS MEDIA
     Dosage: 2PILLS PER DAY, TWICE DAILY, TAKEN BY MOUTH
     Route: 048

REACTIONS (2)
  - Eye irritation [None]
  - Ocular hyperaemia [None]

NARRATIVE: CASE EVENT DATE: 20140511
